FAERS Safety Report 6678176-5 (Version None)
Quarter: 2010Q2

REPORT INFORMATION
  Report Type: 
  Country: None (occurrence: None)
  Receive Date: 20100409
  Receipt Date: 20100409
  Transmission Date: 20101027
  Serious: No
  Sender: FDA-Public Use
  Company Number: None

PATIENT

DRUGS (2)
  1. MINIBAG PLUS SODIUM CHLORIDE 0.9% BAXTER [Suspect]
     Indication: DRUG DELIVERY DEVICE IMPLANTATION
     Dosage: 100ML EVERY 8 HOURS IV (1 DOSE OF 25)
     Route: 042
     Dates: start: 20100323, end: 20100323
  2. MERREM [Suspect]

REACTIONS (1)
  - DEVICE MALFUNCTION [None]
